FAERS Safety Report 9707023 (Version 3)
Quarter: 2014Q1

REPORT INFORMATION
  Report Type: Spontaneous
  Country: US (occurrence: US)
  Receive Date: 20131125
  Receipt Date: 20140131
  Transmission Date: 20141002
  Serious: No
  Sender: FDA-Public Use
  Company Number: US-PFIZER INC-2013333049

PATIENT
  Age: 72 Year
  Sex: Female
  Weight: 89.34 kg

DRUGS (10)
  1. XELJANZ [Suspect]
     Indication: RHEUMATOID ARTHRITIS
     Dosage: 5 MG, BID
     Route: 048
     Dates: start: 20131011, end: 20131118
  2. PREDNISONE [Concomitant]
     Dosage: UNK
  3. METFORMIN [Concomitant]
     Dosage: UNK
  4. MOTRIN [Concomitant]
     Dosage: UNK
  5. TIAZAC [Concomitant]
     Dosage: UNK
  6. LOTENSIN [Concomitant]
     Dosage: UNK
  7. METRONIDAZOLE [Concomitant]
     Dosage: UNK
  8. HYDROCODONE [Concomitant]
  9. VITAMIN D2 [Concomitant]
     Dosage: UNK
  10. FUROSEMIDE [Concomitant]
     Dosage: UNK

REACTIONS (4)
  - Urinary tract infection [Recovered/Resolved]
  - Fatigue [Unknown]
  - Asthenia [Unknown]
  - Myalgia [Unknown]
